FAERS Safety Report 6516045-1 (Version None)
Quarter: 2009Q4

REPORT INFORMATION
  Report Type: 
  Country: None (occurrence: None)
  Receive Date: 20091223
  Receipt Date: 20090629
  Transmission Date: 20100525
  Serious: No
  Sender: FDA-Public Use
  Company Number: US-ABBOTT-09P-163-0583169-00

PATIENT
  Sex: Male
  Weight: 93.07 kg

DRUGS (2)
  1. LUPRON DEPOT [Suspect]
     Indication: PROSTATIC DISORDER
     Route: 050
     Dates: start: 20070101
  2. LUPRON DEPOT [Suspect]
     Dates: start: 20090611

REACTIONS (1)
  - OEDEMA PERIPHERAL [None]
